FAERS Safety Report 17159571 (Version 1)
Quarter: 2019Q4

REPORT INFORMATION
  Report Type: Spontaneous
  Country: SK (occurrence: SK)
  Receive Date: 20191216
  Receipt Date: 20191216
  Transmission Date: 20200122
  Serious: Yes (Other)
  Sender: FDA-Public Use
  Company Number: SK-PFIZER INC-2019527758

PATIENT
  Age: 26 Year
  Sex: Male

DRUGS (3)
  1. SOMATROPIN. [Suspect]
     Active Substance: SOMATROPIN
     Indication: MUSCLE BUILDING THERAPY
     Dosage: UNK
  2. TESTOSTERONE. [Suspect]
     Active Substance: TESTOSTERONE
     Indication: MUSCLE BUILDING THERAPY
     Dosage: UNK
  3. CLENBUTEROL [Suspect]
     Active Substance: CLENBUTEROL
     Indication: MUSCLE BUILDING THERAPY
     Dosage: UNK

REACTIONS (1)
  - Drug abuse [Unknown]
